FAERS Safety Report 7387873-8 (Version None)
Quarter: 2011Q1

REPORT INFORMATION
  Report Type: 
  Country: None (occurrence: None)
  Receive Date: 20110331
  Receipt Date: 20091220
  Transmission Date: 20110831
  Serious: Yes (Death, Hospitalization, Other)
  Sender: FDA-Public Use
  Company Number: US-BAYER-200943028NA

PATIENT
  Sex: Female
  Weight: 58.957 kg

DRUGS (30)
  1. HYDROCHLOROTHIAZIDE [Concomitant]
     Dosage: 25 MG, QD LONGTERM USE
     Route: 048
  2. PENICILLIN [Concomitant]
     Dosage: 500 MG, QD LONGTERM USE
     Route: 048
  3. TRASYLOL [Suspect]
     Indication: TRICUSPID VALVE REPAIR
  4. COUMADIN [Concomitant]
     Dosage: AS DIRECTED, LONGTERM USE
     Route: 048
  5. DIGOXIN [Concomitant]
     Dosage: 0.275 MG, QD LONGTERM USE
     Route: 048
  6. PAVULON [Concomitant]
     Dosage: 12 MG, UNK
     Route: 042
     Dates: start: 20070801
  7. VERSED [Concomitant]
     Dosage: 2 MG, UNK
     Route: 042
     Dates: start: 20070801
  8. ANCEF [Concomitant]
     Dosage: 1 G, UNK
     Route: 042
     Dates: start: 20070801
  9. HEPARIN SODIUM [Concomitant]
     Dosage: 300 MG, UNK
     Route: 042
     Dates: start: 20070801
  10. CRYOPRECIPITATES [Concomitant]
     Dosage: 10 U, PERIOPERATIVE
     Dates: start: 20070801
  11. TRIAMTERENE [Concomitant]
     Dosage: 37.5 MG, QD LONG TERM USE
     Route: 048
  12. CEFAZOLIN [Concomitant]
     Dosage: 1 G, UNK
     Route: 042
     Dates: start: 20070801
  13. PLATELETS [Concomitant]
     Dosage: MULTIPLE
     Dates: start: 20070801, end: 20070926
  14. ALBUMIN NOS [Concomitant]
     Dosage: MULTIPLE
     Dates: start: 20070801, end: 20070926
  15. RED BLOOD CELLS, LEUCOCYTE DEPLETED [Concomitant]
     Dosage: MULTIPLE
     Dates: start: 20070801, end: 20070926
  16. NADOLOL [Concomitant]
     Dosage: 40 MG, QD
     Route: 048
  17. TOBRAMYCIN [Concomitant]
     Dosage: 40 MG, UNK
     Route: 042
     Dates: start: 20070801
  18. DOPAMINE HCL [Concomitant]
     Indication: BLOOD PRESSURE ABNORMAL
     Route: 041
  19. CRYOPRECIPITATES [Concomitant]
     Dosage: MULTIPLE
     Dates: start: 20070801, end: 20070926
  20. VASOPRESSIN [VASOPRESSIN] [Concomitant]
     Indication: BLOOD PRESSURE ABNORMAL
     Route: 041
  21. UNCODEABLE ^UNCLASSIFIABLE^ [Concomitant]
     Dosage: UNK
     Dates: start: 20070809, end: 20070926
  22. TRASYLOL [Suspect]
     Indication: MITRAL VALVE REPLACEMENT
     Dosage: INITIAL TEST 0.5 DOSE AT 07:45
     Route: 042
     Dates: start: 20070801
  23. PROTAMINE SULFATE [Concomitant]
     Dosage: 300 MG, UNK
     Route: 042
     Dates: start: 20070801
  24. FRESH FROZEN PLASMA [Concomitant]
     Dosage: 3 U, PERIOPERATIVE
     Dates: start: 20070801
  25. PLATELETS [Concomitant]
     Dosage: 10 U, PERIOPERATIVE
     Dates: start: 20070801
  26. INSULIN HUMAN [Concomitant]
     Dosage: 19 U, UNK
     Route: 042
     Dates: start: 20070801
  27. FRESH FROZEN PLASMA [Concomitant]
     Dosage: MULTIPLE
     Dates: start: 20070801, end: 20070926
  28. TRASYLOL [Suspect]
     Indication: AORTIC VALVE REPLACEMENT
  29. FOSAMAX [Concomitant]
     Dosage: 70 MG/WEEKLY, LONGTERM USE
     Route: 048
  30. OMNIPAQUE 140 [Concomitant]
     Indication: CATHETERISATION CARDIAC
     Dosage: 150 ML, UNK
     Dates: start: 20070619

REACTIONS (6)
  - RENAL FAILURE [None]
  - UNEVALUABLE EVENT [None]
  - RENAL FAILURE ACUTE [None]
  - DEATH [None]
  - INJURY [None]
  - PAIN [None]
